FAERS Safety Report 15852746 (Version 1)
Quarter: 2019Q1

REPORT INFORMATION
  Report Type: Spontaneous
  Country: US (occurrence: US)
  Receive Date: 20190122
  Receipt Date: 20190122
  Transmission Date: 20190417
  Serious: No
  Sender: FDA-Public Use
  Company Number: US-PERRIGO-18US002468

PATIENT
  Sex: Female

DRUGS (2)
  1. OTHER CHEMOTHERAPEUTICS [Concomitant]
     Active Substance: UNSPECIFIED INGREDIENT
     Indication: PRODUCT USED FOR UNKNOWN INDICATION
     Dosage: UNK
     Route: 065
  2. HALOBETASOL PROPIONATE. [Suspect]
     Active Substance: HALOBETASOL PROPIONATE
     Indication: SKIN REACTION
     Dosage: UNKNOWN, TID-QID PRN
     Route: 061
     Dates: start: 201801

REACTIONS (1)
  - Incorrect dose administered [Unknown]

NARRATIVE: CASE EVENT DATE: 201801
